FAERS Safety Report 8075604-8 (Version None)
Quarter: 2012Q1

REPORT INFORMATION
  Report Type: 
  Country: None (occurrence: None)
  Receive Date: 20120127
  Receipt Date: 20120118
  Transmission Date: 20120608
  Serious: Yes (Hospitalization)
  Sender: FDA-Public Use
  Company Number: CA-JNJFOC-20120109128

PATIENT
  Sex: Male
  Weight: 62 kg

DRUGS (2)
  1. PREDNISONE TAB [Concomitant]
     Dosage: WEANING 5MG PER WEEK UNTIL DONE
     Route: 048
     Dates: start: 20120106
  2. REMICADE [Suspect]
     Indication: CROHN'S DISEASE
     Route: 042

REACTIONS (3)
  - DIARRHOEA [None]
  - ABDOMINAL PAIN [None]
  - HAEMATOCHEZIA [None]
